FAERS Safety Report 9608937 (Version 2)
Quarter: 2013Q4

REPORT INFORMATION
  Report Type: Spontaneous
  Country: US (occurrence: US)
  Receive Date: 20131009
  Receipt Date: 20131025
  Transmission Date: 20140711
  Serious: No
  Sender: FDA-Public Use
  Company Number: US-PFIZER INC-2013286675

PATIENT
  Age: 90 Year
  Sex: Female
  Weight: 44.44 kg

DRUGS (2)
  1. ADVIL [Suspect]
     Indication: BACK PAIN
     Dosage: UNK, ONE A DAY/DAILY
     Route: 048
     Dates: start: 20131003
  2. LEVOTHYROXINE [Concomitant]
     Indication: THYROID DISORDER
     Dosage: 50 MG, DAILY IN MORNING BEFORE BREAKFAST

REACTIONS (3)
  - Throat irritation [Recovered/Resolved]
  - Dysphagia [Unknown]
  - Product taste abnormal [Recovered/Resolved]
